FAERS Safety Report 10590229 (Version 1)
Quarter: 2014Q4

REPORT INFORMATION
  Report Type: Spontaneous
  Country: US (occurrence: None)
  Receive Date: 20141117
  Receipt Date: 20141117
  Transmission Date: 20150529
  Serious: No
  Sender: FDA-Public Use
  Company Number: None

PATIENT
  Age: 65 Year
  Sex: Female
  Weight: 58.06 kg

DRUGS (1)
  1. RECLAST [Suspect]
     Active Substance: ZOLEDRONIC ACID
     Indication: OSTEOPOROSIS
     Dates: start: 20141001, end: 20141001

REACTIONS (14)
  - Mobility decreased [None]
  - Chest pain [None]
  - Back pain [None]
  - Urine abnormality [None]
  - Malaise [None]
  - Body temperature increased [None]
  - Pain [None]
  - Pain in extremity [None]
  - Influenza like illness [None]
  - Fatigue [None]
  - Chills [None]
  - Dizziness [None]
  - Headache [None]
  - Urinary incontinence [None]

NARRATIVE: CASE EVENT DATE: 20141001
